FAERS Safety Report 9609676 (Version 2)
Quarter: 2014Q1

REPORT INFORMATION
  Report Type: Spontaneous
  Country: DE (occurrence: None)
  Receive Date: 20131007
  Receipt Date: 20140123
  Transmission Date: 20141002
  Serious: Yes (Hospitalization)
  Sender: FDA-Public Use
  Company Number: DSM-2013-00907

PATIENT
  Age: 79 Year
  Sex: Male
  Weight: 102 kg

DRUGS (8)
  1. VOTUM [Suspect]
     Indication: HYPERTENSION
     Route: 048
     Dates: start: 20090202, end: 20130522
  2. ASPIRIN (ACETYLSALICYLIC ACID) (ACETYLSALICYLIC ACID) [Concomitant]
  3. ALLOPURINOL [Concomitant]
  4. MOLSIHEXAL (MOLSIDOMINE) [Concomitant]
  5. METOHEXAL (METOPROLOL TARTRATE) ( METOPROLOL TARTRATE) [Concomitant]
  6. FUROSEMIDE [Concomitant]
  7. SIMVASTATIN) (SIMVASTATIN) (SIMVASTATIN) [Concomitant]
  8. BICANORM (SODIUM BICARBONATE) (SODIUM BICARBONATE) [Concomitant]

REACTIONS (3)
  - Colitis microscopic [None]
  - Renal failure acute [None]
  - Weight decreased [None]
